FAERS Safety Report 12501681 (Version 2)
Quarter: 2016Q3

REPORT INFORMATION
  Report Type: Spontaneous
  Country: GB (occurrence: GB)
  Receive Date: 20160627
  Receipt Date: 20160728
  Transmission Date: 20161109
  Serious: Yes (Other)
  Sender: FDA-Public Use
  Company Number: GB-ACTAVIS-2016-13082

PATIENT
  Age: 59 Year
  Sex: Female
  Weight: 63.5 kg

DRUGS (2)
  1. MOMETASONE [Interacting]
     Active Substance: MOMETASONE
     Indication: RHINITIS ALLERGIC
     Dosage: 2 DF, BID - TWO SQUIRTS
     Route: 055
     Dates: start: 20160527
  2. IBUPROFEN (UNKNOWN) [Suspect]
     Active Substance: IBUPROFEN
     Indication: VULVOVAGINAL PAIN
     Dosage: UNK, PRN (2X200 MG UP TO THREE TIMES A DAY)
     Route: 065
     Dates: start: 20160527

REACTIONS (2)
  - Insomnia [Recovered/Resolved]
  - Drug interaction [Unknown]

NARRATIVE: CASE EVENT DATE: 20160527
